FAERS Safety Report 19953805 (Version 2)
Quarter: 2023Q4

REPORT INFORMATION
  Report Type: Other
  Country: CN (occurrence: None)
  Receive Date: 20211014
  Receipt Date: 20231207
  Transmission Date: 20240109
  Serious: Yes (Death, Other)
  Sender: FDA-Public Use
  Company Number: CN-NIVAGEN-000010

PATIENT
  Sex: Male

DRUGS (2)
  1. DECITABINE [Suspect]
     Active Substance: DECITABINE
     Indication: Embryonal rhabdomyosarcoma
  2. TORIPALIMAB [Suspect]
     Active Substance: TORIPALIMAB
     Indication: Embryonal rhabdomyosarcoma

REACTIONS (3)
  - Embryonal rhabdomyosarcoma [Fatal]
  - Disease progression [Fatal]
  - Therapeutic response decreased [Fatal]
